FAERS Safety Report 7039173-3 (Version None)
Quarter: 2010Q4

REPORT INFORMATION
  Report Type: 
  Country: None (occurrence: None)
  Receive Date: 20101007
  Receipt Date: 20101007
  Transmission Date: 20110411
  Serious: No
  Sender: FDA-Public Use
  Company Number: None

PATIENT

DRUGS (1)
  1. ABILIFY [Suspect]
     Indication: MIGRAINE
     Dosage: 30 MG ONCE A DAY FOR 2-3 YEARS

REACTIONS (2)
  - ANXIETY [None]
  - PALPITATIONS [None]
